FAERS Safety Report 10571594 (Version 1)
Quarter: 2014Q4

REPORT INFORMATION
  Report Type: Other
  Country: SE (occurrence: SE)
  Receive Date: 20141107
  Receipt Date: 20141107
  Transmission Date: 20150529
  Serious: Yes (Hospitalization)
  Sender: FDA-Public Use
  Company Number: SE-MYLANLABS-2014M1009140

PATIENT

DRUGS (2)
  1. NAPROXEN MYLAN 500 MG [Suspect]
     Active Substance: NAPROXEN
     Indication: INFLAMMATION
     Dosage: 500 MG, BID
     Dates: start: 20141007, end: 20141009
  2. ORALIN [Concomitant]
     Indication: PRODUCT USED FOR UNKNOWN INDICATION
     Dosage: UNK

REACTIONS (6)
  - Peripheral swelling [Unknown]
  - Pruritus [Unknown]
  - Lip swelling [Unknown]
  - Eye swelling [Unknown]
  - Mouth swelling [Unknown]
  - Throat irritation [Unknown]

NARRATIVE: CASE EVENT DATE: 20141008
